FAERS Safety Report 13798890 (Version 1)
Quarter: 2017Q3

REPORT INFORMATION
  Report Type: Spontaneous
  Country: US (occurrence: US)
  Receive Date: 20170727
  Receipt Date: 20170727
  Transmission Date: 20171127
  Serious: No
  Sender: FDA-Public Use
  Company Number: US-JNJFOC-20170514023

PATIENT
  Age: 5 Year
  Sex: Male
  Weight: 19.05 kg

DRUGS (3)
  1. CHILDRENS SUDAFED NASAL DECONGESTANT [Suspect]
     Active Substance: PSEUDOEPHEDRINE HYDROCHLORIDE
     Indication: NASAL CONGESTION
     Route: 048
     Dates: start: 20170509, end: 20170510
  2. CHILDRENS SUDAFED NASAL DECONGESTANT [Suspect]
     Active Substance: PSEUDOEPHEDRINE HYDROCHLORIDE
     Indication: COUGH
     Route: 048
     Dates: start: 20170509, end: 20170510
  3. CHILDRENS SUDAFED NASAL DECONGESTANT [Suspect]
     Active Substance: PSEUDOEPHEDRINE HYDROCHLORIDE
     Indication: ALLERGIC RESPIRATORY DISEASE
     Route: 048
     Dates: start: 20170509, end: 20170510

REACTIONS (3)
  - Therapeutic response unexpected [Unknown]
  - Incorrect dose administered [Unknown]
  - Product use in unapproved indication [Unknown]

NARRATIVE: CASE EVENT DATE: 20170509
